FAERS Safety Report 18376849 (Version 2)
Quarter: 2020Q4

REPORT INFORMATION
  Report Type: Spontaneous
  Country: ES (occurrence: ES)
  Receive Date: 20201013
  Receipt Date: 20201028
  Transmission Date: 20210114
  Serious: Yes (Hospitalization, Other)
  Sender: FDA-Public Use
  Company Number: ES-SA-2020SA279205

PATIENT

DRUGS (9)
  1. AUBAGIO [Suspect]
     Active Substance: TERIFLUNOMIDE
     Indication: MULTIPLE SCLEROSIS
  2. CANNABIDIOL;DRONABINOL [Concomitant]
     Indication: MULTIPLE SCLEROSIS
  3. PREGABALINE [Concomitant]
     Active Substance: PREGABALIN
     Indication: MULTIPLE SCLEROSIS
  4. BETMIGA [Concomitant]
     Active Substance: MIRABEGRON
     Indication: ANAL INCONTINENCE
     Dosage: 50 MG, QD
     Route: 048
     Dates: start: 201412
  5. AUBAGIO [Suspect]
     Active Substance: TERIFLUNOMIDE
     Indication: RELAPSING-REMITTING MULTIPLE SCLEROSIS
     Dosage: 14 MG, QD
     Route: 048
     Dates: start: 201912, end: 20201007
  6. BETMIGA [Concomitant]
     Active Substance: MIRABEGRON
     Indication: MULTIPLE SCLEROSIS
  7. CANNABIDIOL;DRONABINOL [Concomitant]
     Indication: MUSCLE SPASTICITY
     Dosage: 10-12 SPRAY/DAY
     Route: 045
     Dates: start: 201412
  8. PREGABALINE [Concomitant]
     Active Substance: PREGABALIN
     Indication: NEURALGIA
     Dosage: 375 MG, BID
     Route: 048
     Dates: start: 201412
  9. ETORICOXIB. [Concomitant]
     Active Substance: ETORICOXIB
     Indication: OSTEOARTHRITIS
     Dosage: 60 MG, QD
     Route: 048
     Dates: start: 202007, end: 202010

REACTIONS (3)
  - Gait disturbance [Recovering/Resolving]
  - Psoas abscess [Recovering/Resolving]
  - Arthralgia [Recovering/Resolving]

NARRATIVE: CASE EVENT DATE: 2020
